FAERS Safety Report 6779062-2 (Version None)
Quarter: 2010Q2

REPORT INFORMATION
  Report Type: 
  Country: None (occurrence: None)
  Receive Date: 20100618
  Receipt Date: 20100608
  Transmission Date: 20101027
  Serious: Yes (Other)
  Sender: FDA-Public Use
  Company Number: CA-PFIZER INC-2010071713

PATIENT
  Age: 53 Year
  Sex: Female

DRUGS (5)
  1. NEURONTIN [Suspect]
     Indication: PAIN
     Dosage: 300 MG, 3X/DAY
     Dates: start: 20100501
  2. BACLOFEN [Concomitant]
     Dosage: UNK
  3. VESICARE [Concomitant]
     Dosage: UNK
  4. SENNOSIDES [Concomitant]
     Dosage: UNK
  5. IRON [Concomitant]
     Dosage: UNK

REACTIONS (1)
  - MUSCULOSKELETAL STIFFNESS [None]
